FAERS Safety Report 7303796-4 (Version None)
Quarter: 2011Q1

REPORT INFORMATION
  Report Type: 
  Country: None (occurrence: None)
  Receive Date: 20110221
  Receipt Date: 20110211
  Transmission Date: 20110831
  Serious: Yes (Other)
  Sender: FDA-Public Use
  Company Number: US-ROCHE-759754

PATIENT

DRUGS (1)
  1. TAMIFLU [Suspect]
     Route: 065
     Dates: start: 20110208

REACTIONS (4)
  - NAUSEA [None]
  - HEPATITIS TOXIC [None]
  - BODY TEMPERATURE INCREASED [None]
  - RASH [None]
